FAERS Safety Report 8788064 (Version 2)
Quarter: 2015Q2

REPORT INFORMATION
  Report Type: Report from Study
  Country: US (occurrence: US)
  Receive Date: 20120914
  Receipt Date: 20150626
  Transmission Date: 20150821
  Serious: Yes (Death)
  Sender: FDA-Public Use
  Company Number: US-ROCHE-1128368

PATIENT
  Sex: Male

DRUGS (18)
  1. AVASTIN [Suspect]
     Active Substance: BEVACIZUMAB
     Indication: MALIGNANT MELANOMA
     Route: 042
     Dates: start: 20100209
  2. TAXOL [Concomitant]
     Active Substance: PACLITAXEL
     Route: 042
  3. TAXOL [Concomitant]
     Active Substance: PACLITAXEL
     Route: 042
  4. LORAZEPAM. [Concomitant]
     Active Substance: LORAZEPAM
     Route: 065
  5. AVASTIN [Suspect]
     Active Substance: BEVACIZUMAB
     Route: 042
  6. AVASTIN [Suspect]
     Active Substance: BEVACIZUMAB
     Route: 042
  7. NEULASTA [Concomitant]
     Active Substance: PEGFILGRASTIM
     Route: 058
  8. DIPHENHYDRAMINE [Concomitant]
     Active Substance: DIPHENHYDRAMINE
     Route: 042
  9. PROCHLORPERAZINE. [Concomitant]
     Active Substance: PROCHLORPERAZINE
     Route: 048
  10. BENADRYL [Concomitant]
     Active Substance: DIPHENHYDRAMINE HYDROCHLORIDE
     Route: 042
  11. CARBOPLATIN. [Concomitant]
     Active Substance: CARBOPLATIN
     Route: 042
  12. TAXOL [Concomitant]
     Active Substance: PACLITAXEL
     Route: 042
  13. AVASTIN [Suspect]
     Active Substance: BEVACIZUMAB
     Indication: METASTASES TO LUNG
     Route: 042
  14. CARBOPLATIN. [Concomitant]
     Active Substance: CARBOPLATIN
     Route: 042
  15. PEPCID [Concomitant]
     Active Substance: FAMOTIDINE
     Route: 042
  16. KYTRIL [Concomitant]
     Active Substance: GRANISETRON HYDROCHLORIDE
     Route: 042
  17. DEXAMETHASONE. [Concomitant]
     Active Substance: DEXAMETHASONE
     Route: 042
  18. HEPARIN [Concomitant]
     Active Substance: HEPARIN SODIUM

REACTIONS (3)
  - Death [Fatal]
  - Burning sensation [Unknown]
  - Pain in extremity [Unknown]
